FAERS Safety Report 11236200 (Version 5)
Quarter: 2015Q3

REPORT INFORMATION
  Report Type: Report from Study
  Country: US (occurrence: US)
  Receive Date: 20150702
  Receipt Date: 20150819
  Transmission Date: 20151125
  Serious: Yes (Hospitalization)
  Sender: FDA-Public Use
  Company Number: US-ACTELION-A-US2015-120433

PATIENT
  Age: 60 Year
  Sex: Female

DRUGS (5)
  1. VENTAVIS [Suspect]
     Active Substance: ILOPROST
     Dosage: 2.5 MCG, UNK
     Route: 055
  2. RIOCIGUAT [Concomitant]
     Active Substance: RIOCIGUAT
  3. COUMADIN [Concomitant]
     Active Substance: WARFARIN SODIUM
  4. VENTAVIS [Suspect]
     Active Substance: ILOPROST
     Indication: PULMONARY HYPERTENSION
     Dosage: 5 MCG, 6-9X PER DAY
     Route: 055
     Dates: start: 20080521
  5. REVATIO [Concomitant]
     Active Substance: SILDENAFIL CITRATE

REACTIONS (4)
  - Pneumonia [Unknown]
  - Sickle cell anaemia with crisis [Unknown]
  - Gastrointestinal haemorrhage [Unknown]
  - Haematochezia [Unknown]
